FAERS Safety Report 7149243-7 (Version None)
Quarter: 2010Q4

REPORT INFORMATION
  Report Type: 
  Country: None (occurrence: None)
  Receive Date: 20101209
  Receipt Date: 20101130
  Transmission Date: 20110411
  Serious: Yes (Hospitalization)
  Sender: FDA-Public Use
  Company Number: PHHO2010FR10071

PATIENT
  Sex: Male
  Weight: 62 kg

DRUGS (3)
  1. CERTICAN [Suspect]
     Indication: RENAL TRANSPLANT
     Dosage: 3.75 MG
     Route: 048
     Dates: start: 20100605
  2. CELLCEPT [Suspect]
     Indication: RENAL TRANSPLANT
     Dosage: UNK
     Route: 048
     Dates: start: 20100531
  3. CORTANCYL [Suspect]
     Indication: RENAL TRANSPLANT
     Dosage: 15MG
     Route: 048
     Dates: start: 20100605

REACTIONS (4)
  - AMNESIA [None]
  - DEPRESSION [None]
  - DISORIENTATION [None]
  - SLEEP DISORDER [None]
